FAERS Safety Report 4711174-7 (Version None)
Quarter: 2005Q3

REPORT INFORMATION
  Report Type: 
  Country: None (occurrence: None)
  Receive Date: 20050708
  Receipt Date: 20050627
  Transmission Date: 20060218
  Serious: Yes (Other)
  Sender: FDA-Public Use
  Company Number: SP-2005-002261

PATIENT
  Age: 70 Year
  Sex: Female

DRUGS (4)
  1. OLMETEC [Suspect]
     Indication: HYPERTENSION
     Dosage: 20 MG QD PO
     Route: 048
     Dates: start: 20041206
  2. ETIOVEN [Concomitant]
  3. CYSTINE B6 BAILLEUL [Concomitant]
  4. SERMION [Concomitant]

REACTIONS (2)
  - ANAEMIA MACROCYTIC [None]
  - PANCYTOPENIA [None]
